FAERS Safety Report 6636437 (Version 3)
Quarter: 2014Q2

REPORT INFORMATION
  Report Type: Report from Study
  Country: DE (occurrence: DE)
  Receive Date: 20080509
  Receipt Date: 20140430
  Transmission Date: 20141212
  Serious: Yes (Hospitalization, Disabling, Other)
  Sender: FDA-Public Use
  Company Number: DE-BAYER-200817041GPV

PATIENT
  Age: 44 Year
  Sex: Female
  Weight: 89 kg

DRUGS (5)
  1. BETAFERON [Suspect]
     Indication: VIRAL CARDIOMYOPATHY
     Dosage: ACCORDING TO STUDY TITLE: GIVEN SUBCUTANEOUSLY EVERY OTHER DAY OVER 24 WEEKS
     Route: 058
     Dates: start: 20050917, end: 20060317
  2. L-THYROXIN [Concomitant]
     Indication: HYPOTHYROIDISM
  3. BLOPRESS [Concomitant]
  4. TORASEMIDE [Concomitant]
  5. SPIRO [Concomitant]

REACTIONS (5)
  - Cognitive disorder [Not Recovered/Not Resolved]
  - Major depression [Recovering/Resolving]
  - Memory impairment [Not Recovered/Not Resolved]
  - Disturbance in attention [Not Recovered/Not Resolved]
  - Memory impairment [Not Recovered/Not Resolved]
